FAERS Safety Report 20603633 (Version 1)
Quarter: 2022Q1

REPORT INFORMATION
  Report Type: Spontaneous
  Country: US (occurrence: None)
  Receive Date: 20220316
  Receipt Date: 20220316
  Transmission Date: 20220424
  Serious: Yes (Life-Threatening, Other)
  Sender: FDA-Public Use
  Company Number: None

PATIENT
  Age: 42 Year
  Sex: Female
  Weight: 96 kg

DRUGS (2)
  1. IOHEXOL [Suspect]
     Active Substance: IOHEXOL
     Indication: Surgery
     Dosage: FREQUENCY : ONCE;?
     Route: 042
     Dates: start: 20220127, end: 20220127
  2. IOHEXOL [Suspect]
     Active Substance: IOHEXOL
     Indication: Computerised tomogram

REACTIONS (5)
  - Angioedema [None]
  - Nausea [None]
  - Vomiting [None]
  - Periorbital oedema [None]
  - Haematemesis [None]

NARRATIVE: CASE EVENT DATE: 20220127
